FAERS Safety Report 10555285 (Version 1)
Quarter: 2014Q4

REPORT INFORMATION
  Report Type: Spontaneous
  Country: US (occurrence: None)
  Receive Date: 20141029
  Receipt Date: 20141029
  Transmission Date: 20150529
  Serious: No
  Sender: FDA-Public Use
  Company Number: None

PATIENT
  Age: 25 Year
  Sex: Female
  Weight: 63.5 kg

DRUGS (1)
  1. MIRVASO [Suspect]
     Active Substance: BRIMONIDINE TARTRATE
     Indication: CAPILLARY FRAGILITY
     Dosage: PEA SIZED AMOUNT ONCE DAILY APPLIED TO A SURFACE, USUALLY THE SKIN
     Route: 061
     Dates: start: 20141024, end: 20141026

REACTIONS (5)
  - Erythema [None]
  - Skin warm [None]
  - Feeling abnormal [None]
  - Rash macular [None]
  - Flushing [None]

NARRATIVE: CASE EVENT DATE: 20141026
